FAERS Safety Report 19558694 (Version 1)
Quarter: 2021Q3

REPORT INFORMATION
  Report Type: Spontaneous
  Country: US (occurrence: US)
  Receive Date: 20210714
  Receipt Date: 20210714
  Transmission Date: 20211014
  Serious: No
  Sender: FDA-Public Use
  Company Number: US-SK LIFE SCIENCE, INC-SKPVG-2020-000322

PATIENT

DRUGS (4)
  1. AMITRIPTYLINE [Concomitant]
     Active Substance: AMITRIPTYLINE
     Indication: HEADACHE
     Dosage: 100 MILLIGRAM, QD
     Route: 065
  2. TRILEPTAL [Suspect]
     Active Substance: OXCARBAZEPINE
     Indication: PRODUCT USED FOR UNKNOWN INDICATION
     Dosage: 600 MILLIGRAM, BID
     Route: 065
  3. XCOPRI [Suspect]
     Active Substance: CENOBAMATE
     Indication: SEIZURE
     Dosage: 50 MILLIGRAM, QD
     Route: 048
     Dates: start: 202007, end: 202008
  4. BOTOX [Concomitant]
     Active Substance: ONABOTULINUMTOXINA
     Indication: HEADACHE
     Dosage: UNK
     Route: 065
     Dates: start: 20200828, end: 20200828

REACTIONS (3)
  - Somnolence [Recovering/Resolving]
  - Vision blurred [Recovering/Resolving]
  - Decreased appetite [Recovering/Resolving]

NARRATIVE: CASE EVENT DATE: 2020
